FAERS Safety Report 4491179-4 (Version None)
Quarter: 2004Q3

REPORT INFORMATION
  Report Type: 
  Country: None (occurrence: None)
  Receive Date: 20040927
  Receipt Date: 20040803
  Transmission Date: 20050211
  Serious: No
  Sender: FDA-Public Use
  Company Number: USA040874455

PATIENT
  Age: 53 Year
  Sex: Male
  Weight: 66 kg

DRUGS (1)
  1. STRATTERA [Suspect]
     Dosage: 40 MG

REACTIONS (1)
  - THROAT IRRITATION [None]
